FAERS Safety Report 8533678-1 (Version None)
Quarter: 2012Q3

REPORT INFORMATION
  Report Type: 
  Country: None (occurrence: None)
  Receive Date: 20120724
  Receipt Date: 20120719
  Transmission Date: 20120928
  Serious: No
  Sender: FDA-Public Use
  Company Number: US-PFIZER INC-2012175737

PATIENT
  Sex: Female
  Weight: 65.76 kg

DRUGS (2)
  1. ZYRTEC [Concomitant]
     Indication: HYPERSENSITIVITY
     Dosage: 10 MG, DAILY
  2. RAMIPRIL [Suspect]
     Indication: HYPERTENSION
     Dosage: 10 MG, DAILY
     Dates: start: 20120501, end: 20120615

REACTIONS (3)
  - MYALGIA [None]
  - PAIN [None]
  - COUGH [None]
